FAERS Safety Report 19771328 (Version 2)
Quarter: 2021Q3

REPORT INFORMATION
  Report Type: Spontaneous
  Country: FR (occurrence: FR)
  Receive Date: 20210831
  Receipt Date: 20210831
  Transmission Date: 20211014
  Serious: Yes (Hospitalization)
  Sender: FDA-Public Use
  Company Number: FR-PFIZER INC-202101078220

PATIENT
  Age: 30 Year
  Sex: Male

DRUGS (3)
  1. LYRICA [Suspect]
     Active Substance: PREGABALIN
     Dosage: 1200 MG, ALTERNATE DAY
     Dates: start: 20210411, end: 20210412
  2. CANNABIS [Suspect]
     Active Substance: CANNABIS SATIVA SUBSP. INDICA TOP
     Dosage: UNK
     Dates: start: 20210411, end: 20210412
  3. COCAINE [Suspect]
     Active Substance: COCAINE
     Dosage: 1.5 G, ALTERNATE DAY
     Dates: start: 20210411, end: 20210412

REACTIONS (4)
  - Drug abuse [Not Recovered/Not Resolved]
  - Depressed level of consciousness [Recovered/Resolved]
  - Anxiety [Recovered/Resolved]
  - Psychomotor hyperactivity [Recovered/Resolved]

NARRATIVE: CASE EVENT DATE: 20210412
